FAERS Safety Report 11959033 (Version 1)
Quarter: 2016Q1

REPORT INFORMATION
  Report Type: Report from Study
  Country: US (occurrence: US)
  Receive Date: 20160126
  Receipt Date: 20160126
  Transmission Date: 20160526
  Serious: No
  Sender: FDA-Public Use
  Company Number: US-ABBVIE-15K-163-1374903-00

PATIENT
  Age: 27 Year
  Sex: Female
  Weight: 59.02 kg

DRUGS (7)
  1. ZIPRASIDONE. [Concomitant]
     Active Substance: ZIPRASIDONE
     Indication: ANXIETY
  2. HUMIRA [Suspect]
     Active Substance: ADALIMUMAB
     Route: 065
     Dates: start: 20150401, end: 20150401
  3. PAROXETINE [Concomitant]
     Active Substance: PAROXETINE\PAROXETINE HYDROCHLORIDE
     Indication: ANXIETY
  4. HUMIRA [Suspect]
     Active Substance: ADALIMUMAB
     Indication: CROHN^S DISEASE
     Route: 065
     Dates: start: 20150218, end: 20150218
  5. HUMIRA [Suspect]
     Active Substance: ADALIMUMAB
     Route: 065
  6. ALPRAZOLAM. [Concomitant]
     Active Substance: ALPRAZOLAM
     Indication: ANXIETY
  7. ALPRAZOLAM. [Concomitant]
     Active Substance: ALPRAZOLAM
     Indication: DEPRESSION

REACTIONS (7)
  - Abdominal pain [Recovered/Resolved]
  - Ocular icterus [Recovered/Resolved]
  - Dizziness [Not Recovered/Not Resolved]
  - Fall [Recovered/Resolved]
  - Head injury [Recovered/Resolved]
  - Electrocardiogram PR shortened [Not Recovered/Not Resolved]
  - Ocular icterus [Recovered/Resolved]

NARRATIVE: CASE EVENT DATE: 201503
